FAERS Safety Report 14664476 (Version 1)
Quarter: 2018Q1

REPORT INFORMATION
  Report Type: Spontaneous
  Country: BR (occurrence: BR)
  Receive Date: 20180321
  Receipt Date: 20180321
  Transmission Date: 20180509
  Serious: Yes (Hospitalization)
  Sender: FDA-Public Use
  Company Number: BR-BAXTER-2018BAX008337

PATIENT
  Age: 51 Year
  Sex: Male
  Weight: 99 kg

DRUGS (15)
  1. GENUXAL [Suspect]
     Active Substance: CYCLOPHOSPHAMIDE
     Indication: PRODUCT USED FOR UNKNOWN INDICATION
     Dosage: FIRST CYCLE OF R-CHOP 21 PROTOCOL
     Route: 042
     Dates: start: 20171110, end: 20171110
  2. FAULDVINCRI [Suspect]
     Active Substance: VINCRISTINE SULFATE
     Dosage: SECOND CYCLE OF R-CHOP 21 PROTOCOL
     Route: 042
     Dates: start: 20171201, end: 20171201
  3. PREDNISONA [Concomitant]
     Active Substance: PREDNISONE
     Indication: PRODUCT USED FOR UNKNOWN INDICATION
     Route: 065
  4. MABTHERA [Suspect]
     Active Substance: RITUXIMAB
     Dosage: SECOND CYCLE OF R-CHOP 21 PROTOCOL
     Route: 042
     Dates: start: 20171201, end: 20171201
  5. PREDNISOLONE. [Suspect]
     Active Substance: PREDNISOLONE
     Dosage: SECOND CYCLE OF R-CHOP 21 PROTOCOL
     Route: 065
     Dates: start: 20171201, end: 20171201
  6. RIVOTRIL [Concomitant]
     Active Substance: CLONAZEPAM
     Indication: PRODUCT USED FOR UNKNOWN INDICATION
     Route: 065
  7. FAULDVINCRI [Suspect]
     Active Substance: VINCRISTINE SULFATE
     Indication: PRODUCT USED FOR UNKNOWN INDICATION
     Dosage: FIRST CYCLE OF R-CHOP 21 PROTOCOL
     Route: 042
     Dates: start: 20171110, end: 20171110
  8. MABTHERA [Suspect]
     Active Substance: RITUXIMAB
     Indication: PRODUCT USED FOR UNKNOWN INDICATION
     Dosage: FIRST CYCLE OF R-CHOP 21 PROTOCOL
     Route: 042
     Dates: start: 20171110
  9. ALOPURINOL [Suspect]
     Active Substance: ALLOPURINOL
     Indication: PRODUCT USED FOR UNKNOWN INDICATION
     Route: 065
  10. ACICLOVIR [Concomitant]
     Active Substance: ACYCLOVIR
     Indication: PRODUCT USED FOR UNKNOWN INDICATION
     Dosage: 2 TIMES PER DAY
     Route: 065
  11. GENUXAL [Suspect]
     Active Substance: CYCLOPHOSPHAMIDE
     Dosage: SECOND CYCLE OF R-CHOP 21 PROTOCOL
     Route: 042
     Dates: start: 20171201, end: 20171201
  12. FAULDOXO [Suspect]
     Active Substance: DOXORUBICIN HYDROCHLORIDE
     Indication: PRODUCT USED FOR UNKNOWN INDICATION
     Dosage: FIRST CYCLE OF R-CHOP 21 PROTOCOL
     Route: 042
     Dates: start: 20171110, end: 20171110
  13. PANTOPRAZOL [Suspect]
     Active Substance: PANTOPRAZOLE SODIUM
     Indication: PRODUCT USED FOR UNKNOWN INDICATION
     Route: 065
  14. PREDNISOLONE. [Suspect]
     Active Substance: PREDNISOLONE
     Indication: PRODUCT USED FOR UNKNOWN INDICATION
     Dosage: FIRST CYCLE OF R-CHOP 21 PROTOCOL
     Route: 065
     Dates: start: 20171110
  15. FAULDOXO [Suspect]
     Active Substance: DOXORUBICIN HYDROCHLORIDE
     Dosage: SECOND CYCLE OF R-CHOP 21 PROTOCOL
     Route: 042
     Dates: start: 20171201, end: 20171201

REACTIONS (2)
  - Febrile neutropenia [Recovered/Resolved]
  - Proctalgia [Recovered/Resolved]

NARRATIVE: CASE EVENT DATE: 20171215
